FAERS Safety Report 5306098-0 (Version None)
Quarter: 2007Q2

REPORT INFORMATION
  Report Type: 
  Country: None (occurrence: None)
  Receive Date: 20070424
  Receipt Date: 20060912
  Transmission Date: 20071010
  Serious: No
  Sender: FDA-Public Use
  Company Number: US-BRISTOL-MYERS SQUIBB COMPANY-13506332

PATIENT
  Age: 4 Decade
  Sex: Female

DRUGS (8)
  1. PARAPLATIN [Suspect]
     Indication: ANAL CANCER RECURRENT
     Route: 042
  2. FLUOROURACIL [Concomitant]
  3. MANNITOL [Concomitant]
     Indication: PREMEDICATION
  4. DECADRON [Concomitant]
     Indication: PREMEDICATION
  5. REGLAN [Concomitant]
     Indication: PREMEDICATION
  6. EMEND [Concomitant]
     Indication: PREMEDICATION
  7. KYTRIL [Concomitant]
     Indication: PREMEDICATION
  8. ACYCLOVIR [Concomitant]
     Indication: PREMEDICATION

REACTIONS (1)
  - TINNITUS [None]
